FAERS Safety Report 5273023-0 (Version None)
Quarter: 2007Q1

REPORT INFORMATION
  Report Type: 
  Country: None (occurrence: None)
  Receive Date: 20070322
  Receipt Date: 20070314
  Transmission Date: 20070707
  Serious: Yes (Other)
  Sender: FDA-Public Use
  Company Number: US-SHR-US-2007-009299

PATIENT
  Age: 34 Year
  Sex: Female
  Weight: 68 kg

DRUGS (4)
  1. MIRENA [Suspect]
     Indication: MENORRHAGIA
     Dosage: 20 A?G/DAY, CONT
     Route: 015
     Dates: start: 20070201
  2. ZANTAC [Concomitant]
  3. ATIVAN [Concomitant]
  4. CYMBALTA [Concomitant]

REACTIONS (3)
  - GENITAL HAEMORRHAGE [None]
  - PROCEDURAL PAIN [None]
  - UTERINE LEIOMYOMA [None]
